FAERS Safety Report 5610787-8 (Version None)
Quarter: 2008Q1

REPORT INFORMATION
  Report Type: 
  Country: None (occurrence: None)
  Receive Date: 20080201
  Receipt Date: 20080123
  Transmission Date: 20080703
  Serious: Yes (Hospitalization, Other)
  Sender: FDA-Public Use
  Company Number: FR-BRISTOL-MYERS SQUIBB COMPANY-14052054

PATIENT
  Age: 26 Year
  Sex: Female

DRUGS (9)
  1. APROVEL TABS 150 MG [Suspect]
     Indication: HYPERTENSION
     Route: 048
     Dates: start: 20050915
  2. GLUCOPHAGE [Suspect]
     Indication: DIABETES MELLITUS
     Dosage: RESTARTED ON NOV2006.
     Route: 048
     Dates: start: 20060515, end: 20061016
  3. IMMUNE GLOBULIN INTRAVENOUS (HUMAN) [Suspect]
     Indication: DIABETIC COMPLICATION
     Dosage: ALSO TAKEN FROM 14NOV2006-18NOV2006.
     Route: 042
     Dates: start: 20061017, end: 20061023
  4. MOPRAL [Suspect]
     Route: 048
     Dates: start: 20060515
  5. NEURONTIN [Suspect]
     Indication: DIABETIC NEUROPATHY
     Route: 048
     Dates: start: 20060515, end: 20061101
  6. DAFLON [Suspect]
     Indication: OEDEMA
     Route: 048
     Dates: start: 20060515
  7. MOTILIUM [Concomitant]
     Indication: IMPAIRED GASTRIC EMPTYING
  8. MIXTARD HUMAN 70/30 [Concomitant]
     Dosage: 1 DOSAGE FORM = 30U
  9. ACTRAPID [Concomitant]

REACTIONS (5)
  - HEPATITIS [None]
  - HYPOGLYCAEMIA [None]
  - NEUROPATHY PERIPHERAL [None]
  - RENAL IMPAIRMENT [None]
  - URINARY RETENTION [None]
